FAERS Safety Report 8866170 (Version 1)
Quarter: 2012Q4

REPORT INFORMATION
  Report Type: 
  Country: GB (occurrence: GB)
  Receive Date: 20121025
  Receipt Date: 20121025
  Transmission Date: 20130627
  Serious: Yes (Hospitalization)
  Sender: FDA-Public Use
  Company Number: PHFR2004GB09309

PATIENT
  Sex: Male

DRUGS (2)
  1. CLOZARIL [Suspect]
     Route: 048
     Dates: start: 20010701
  2. AMFETAMINE W/DEXAMFETAMINE [Suspect]

REACTIONS (1)
  - Overdose [Unknown]
